FAERS Safety Report 14529719 (Version 1)
Quarter: 2018Q1

REPORT INFORMATION
  Report Type: Spontaneous
  Country: ZA (occurrence: ZA)
  Receive Date: 20180214
  Receipt Date: 20180214
  Transmission Date: 20180509
  Serious: Yes (Hospitalization)
  Sender: FDA-Public Use
  Company Number: PHHY2018ZA018676

PATIENT
  Age: 13 Month
  Sex: Female

DRUGS (1)
  1. LAMPRENE [Suspect]
     Active Substance: CLOFAZIMINE
     Indication: TUBERCULOSIS
     Dosage: UNK(EVERY 3 DAYS)
     Route: 065
     Dates: start: 20180126

REACTIONS (8)
  - Wrong technique in product usage process [Unknown]
  - Dysphagia [Recovering/Resolving]
  - Hemiplegia [Recovering/Resolving]
  - Critical illness [Recovering/Resolving]
  - Tongue discolouration [Recovering/Resolving]
  - Off label use [Unknown]
  - Meningitis [Recovering/Resolving]
  - Loss of consciousness [Recovering/Resolving]
